FAERS Safety Report 4569373-3 (Version None)
Quarter: 2005Q1

REPORT INFORMATION
  Report Type: 
  Country: None (occurrence: None)
  Receive Date: 20050201
  Receipt Date: 20050119
  Transmission Date: 20050727
  Serious: Yes (Other)
  Sender: FDA-Public Use
  Company Number: 2005015799

PATIENT
  Age: 71 Year
  Sex: Female

DRUGS (7)
  1. ZITHROMAX [Suspect]
     Indication: SINUSITIS
     Dosage: 250 MG (250 MG, 1 IN 1 D) ORAL
     Route: 048
     Dates: start: 20050101
  2. ALL OTHER THERAPEUTIC PRODUCTS [Suspect]
     Indication: SINUSITIS
     Dates: start: 20050114, end: 20050114
  3. ACETYLSALICYLIC ACID [Concomitant]
  4. RAMIPRIL [Concomitant]
  5. METOPROLOL TARTRATE [Concomitant]
  6. VICODIN [Concomitant]
  7. FLUTICASONE PROPIONATE [Concomitant]

REACTIONS (3)
  - BLINDNESS [None]
  - DRUG EFFECT DECREASED [None]
  - WEIGHT DECREASED [None]
